FAERS Safety Report 15290564 (Version 2)
Quarter: 2018Q3

REPORT INFORMATION
  Report Type: Spontaneous
  Country: FR (occurrence: FR)
  Receive Date: 20180817
  Receipt Date: 20180827
  Transmission Date: 20181010
  Serious: Yes (Life-Threatening)
  Sender: FDA-Public Use
  Company Number: FR-ASTRAZENECA-2018SF01791

PATIENT
  Age: 60 Year
  Sex: Male
  Weight: 125 kg

DRUGS (12)
  1. PARACETAMOL [Suspect]
     Active Substance: ACETAMINOPHEN
     Indication: TOXICITY TO VARIOUS AGENTS
     Dosage: 12.0DF UNKNOWN
     Route: 048
     Dates: start: 20180722
  2. IRBESARTAN. [Suspect]
     Active Substance: IRBESARTAN
     Indication: TOXICITY TO VARIOUS AGENTS
     Dosage: 60.0DF UNKNOWN
     Route: 048
  3. PARACETAMOL [Suspect]
     Active Substance: ACETAMINOPHEN
     Indication: TOXICITY TO VARIOUS AGENTS
     Dosage: 12.0DF UNKNOWN
     Route: 048
     Dates: start: 20180722
  4. IRBESARTAN. [Suspect]
     Active Substance: IRBESARTAN
     Indication: TOXICITY TO VARIOUS AGENTS
     Dosage: 60.0DF UNKNOWN
     Route: 048
  5. LERCAN [Suspect]
     Active Substance: LERCANIDIPINE
     Indication: TOXICITY TO VARIOUS AGENTS
     Dosage: 45.0DF UNKNOWN
     Route: 048
     Dates: start: 20180722
  6. ESOMEPRAZOLE MAGNESIUM. [Suspect]
     Active Substance: ESOMEPRAZOLE MAGNESIUM
     Indication: TOXICITY TO VARIOUS AGENTS
     Dosage: 21.0DF UNKNOWN
     Route: 048
  7. SPIRONOLACTONE. [Suspect]
     Active Substance: SPIRONOLACTONE
     Indication: TOXICITY TO VARIOUS AGENTS
     Dosage: 60.0DF UNKNOWN
     Route: 048
  8. ATARAX [Suspect]
     Active Substance: HYDROXYZINE HYDROCHLORIDE
     Indication: TOXICITY TO VARIOUS AGENTS
     Dosage: 10.0DF UNKNOWN
     Route: 048
  9. SPIRONOLACTONE. [Suspect]
     Active Substance: SPIRONOLACTONE
     Indication: TOXICITY TO VARIOUS AGENTS
     Dosage: 60.0DF UNKNOWN
     Route: 048
  10. ATARAX [Suspect]
     Active Substance: HYDROXYZINE HYDROCHLORIDE
     Indication: TOXICITY TO VARIOUS AGENTS
     Dosage: 10.0DF UNKNOWN
     Route: 048
  11. LERCAN [Suspect]
     Active Substance: LERCANIDIPINE
     Indication: TOXICITY TO VARIOUS AGENTS
     Dosage: 45.0DF UNKNOWN
     Route: 048
     Dates: start: 20180722
  12. ESOMEPRAZOLE MAGNESIUM. [Suspect]
     Active Substance: ESOMEPRAZOLE MAGNESIUM
     Indication: TOXICITY TO VARIOUS AGENTS
     Dosage: 21.0DF UNKNOWN
     Route: 048

REACTIONS (5)
  - Lactic acidosis [Recovered/Resolved]
  - Toxicity to various agents [Recovering/Resolving]
  - Vasoplegia syndrome [Recovering/Resolving]
  - Hypotension [Recovering/Resolving]
  - Renal failure [Recovered/Resolved]

NARRATIVE: CASE EVENT DATE: 20180722
